FAERS Safety Report 16864598 (Version 1)
Quarter: 2019Q3

REPORT INFORMATION
  Report Type: Spontaneous
  Country: US (occurrence: US)
  Receive Date: 20190928
  Receipt Date: 20190928
  Transmission Date: 20191005
  Serious: No
  Sender: FDA-Public Use
  Company Number: PHEH2019US039902

PATIENT
  Sex: Male

DRUGS (1)
  1. PREDNISONE. [Suspect]
     Active Substance: PREDNISONE
     Indication: IMMUNE THROMBOCYTOPENIC PURPURA
     Dosage: 90 MG, QID
     Route: 065

REACTIONS (4)
  - Drug ineffective [Unknown]
  - Night sweats [Unknown]
  - Depressed mood [Unknown]
  - Insomnia [Unknown]
